FAERS Safety Report 8721030 (Version 3)
Quarter: 2013Q3

REPORT INFORMATION
  Report Type: Report from Study
  Country: DE (occurrence: DE)
  Receive Date: 20120813
  Receipt Date: 20130805
  Transmission Date: 20140515
  Serious: Yes (Hospitalization)
  Sender: FDA-Public Use
  Company Number: PHHO2012DE011676

PATIENT
  Age: 39 Year
  Sex: Male
  Weight: 55 kg

DRUGS (12)
  1. PROGRAF [Suspect]
     Indication: RENAL TRANSPLANT
     Dosage: 5 MG, UNK
     Route: 048
     Dates: start: 20120725
  2. SIMULECT [Suspect]
     Indication: RENAL TRANSPLANT
     Dosage: 20 MG, UNK
     Route: 042
     Dates: start: 20120725
  3. MYFORTIC [Suspect]
     Indication: RENAL TRANSPLANT
     Dosage: 540 MG, BID
     Route: 048
     Dates: start: 20120725
  4. SOLU-DECORTIN-H [Suspect]
     Indication: RENAL TRANSPLANT
     Dosage: 500 UG, UNK
     Route: 042
     Dates: start: 20120725
  5. DECORTIN-H [Suspect]
     Indication: RENAL TRANSPLANT
     Dosage: 60 MG, UNK
     Route: 048
     Dates: start: 20120725
  6. DECORTIN-H [Suspect]
     Dosage: 60 MG, UNK
     Route: 048
     Dates: start: 20120808
  7. PRAVASTATIN [Concomitant]
     Indication: CARDIOVASCULAR EVENT PROPHYLAXIS
     Dosage: 20 MG, ONCE/SINGLE
     Route: 048
     Dates: start: 20120727
  8. PANTOZOL [Concomitant]
     Indication: PROPHYLAXIS
     Dosage: 40 MG, ONCE/SINGLE
     Route: 048
     Dates: start: 20120725
  9. PANTOZOL [Concomitant]
     Indication: DYSPEPSIA
  10. NORVASC [Concomitant]
     Indication: HYPERTENSION
     Dosage: 5 MG, BID
     Route: 048
     Dates: start: 201108
  11. MOXONIDINE [Concomitant]
     Indication: HYPERTENSION
     Dosage: 0.3 MG, UNK
     Route: 048
     Dates: start: 201108
  12. NEBIVOLOL [Concomitant]
     Indication: HYPERTENSION
     Dosage: 5 MG, UNK
     Route: 048
     Dates: start: 201108

REACTIONS (2)
  - Escherichia urinary tract infection [Recovered/Resolved]
  - Kidney transplant rejection [Recovered/Resolved]
